FAERS Safety Report 15959576 (Version 3)
Quarter: 2022Q4

REPORT INFORMATION
  Report Type: Report from Study
  Country: IT (occurrence: IT)
  Receive Date: 20190214
  Receipt Date: 20221202
  Transmission Date: 20230113
  Serious: Yes (Hospitalization, Disabling, Other)
  Sender: FDA-Public Use
  Company Number: None

PATIENT
  Age: 64 Year
  Sex: Male

DRUGS (18)
  1. GLIPIZIDE [Interacting]
     Active Substance: GLIPIZIDE
     Indication: Product used for unknown indication
  2. SIMVASTATIN [Interacting]
     Active Substance: SIMVASTATIN
     Indication: Product used for unknown indication
  3. SPIRONOLACTONE [Interacting]
     Active Substance: SPIRONOLACTONE
     Indication: Product used for unknown indication
  4. TACROLIMUS [Interacting]
     Active Substance: TACROLIMUS
     Indication: Product used for unknown indication
  5. TERAZOSIN [Interacting]
     Active Substance: TERAZOSIN HYDROCHLORIDE
     Indication: Product used for unknown indication
  6. SPIRONOLACTONE [Interacting]
     Active Substance: SPIRONOLACTONE
     Indication: Product used for unknown indication
  7. INSULIN NOS [Interacting]
     Active Substance: INSULIN NOS
     Indication: Product used for unknown indication
  8. PREDNISONE [Interacting]
     Active Substance: PREDNISONE
     Indication: Product used for unknown indication
  9. CYCLOSPORINE [Interacting]
     Active Substance: CYCLOSPORINE
     Indication: Product used for unknown indication
  10. DIGOXIN [Interacting]
     Active Substance: DIGOXIN
     Indication: Product used for unknown indication
  11. AZATHIOPRINE [Interacting]
     Active Substance: AZATHIOPRINE
     Indication: Product used for unknown indication
  12. INFLUENZA VIRUS VACCINE [Interacting]
     Active Substance: INFLUENZA VIRUS VACCINE
     Indication: Immunisation
  13. LOVASTATIN [Interacting]
     Active Substance: LOVASTATIN
     Indication: Product used for unknown indication
     Dosage: REGIMEN 1
  14. ASPIRIN [Interacting]
     Active Substance: ASPIRIN
     Indication: Product used for unknown indication
  15. ENALAPRIL [Interacting]
     Active Substance: ENALAPRIL
     Indication: Product used for unknown indication
  16. METFORMIN [Interacting]
     Active Substance: METFORMIN HYDROCHLORIDE
     Indication: Product used for unknown indication
  17. CALCITRIOL [Concomitant]
     Active Substance: CALCITRIOL
     Indication: Product used for unknown indication
  18. EZETIMIBE [Concomitant]
     Active Substance: EZETIMIBE
     Indication: Product used for unknown indication

REACTIONS (22)
  - Drug interaction [Unknown]
  - Asthenia [Unknown]
  - Myositis [Unknown]
  - Myopathy [Unknown]
  - Hepatic function abnormal [Unknown]
  - Right ventricular failure [Unknown]
  - Myasthenic syndrome [Unknown]
  - Cardiovascular disorder [Unknown]
  - Diabetes mellitus [Unknown]
  - Hyperbilirubinaemia [Unknown]
  - Dysuria [Unknown]
  - Condition aggravated [Unknown]
  - Renal failure [Unknown]
  - Hypertension [Unknown]
  - Hyperkalaemia [Unknown]
  - Rhabdomyolysis [Unknown]
  - Acute kidney injury [Unknown]
  - Upper respiratory tract infection [Unknown]
  - Muscular weakness [Unknown]
  - Proteinuria [Unknown]
  - Pyrexia [Unknown]
  - Renal impairment [Unknown]
